APPROVED DRUG PRODUCT: CYCLOBENZAPRINE HYDROCHLORIDE
Active Ingredient: CYCLOBENZAPRINE HYDROCHLORIDE
Strength: 5MG
Dosage Form/Route: TABLET;ORAL
Application: A077209 | Product #002 | TE Code: AB
Applicant: OXFORD PHARMACEUTICALS LLC
Approved: Feb 3, 2006 | RLD: No | RS: No | Type: RX